FAERS Safety Report 10664629 (Version 1)
Quarter: 2014Q4

REPORT INFORMATION
  Report Type: Spontaneous
  Country: US (occurrence: None)
  Receive Date: 20141205
  Receipt Date: 20141205
  Transmission Date: 20150529
  Serious: Yes (Hospitalization, Other)
  Sender: FDA-Public Use
  Company Number: USA-2014110838

PATIENT
  Age: 66 Year
  Sex: Female

DRUGS (10)
  1. POMALYST [Suspect]
     Active Substance: POMALIDOMIDE
     Indication: RECTAL CANCER
     Route: 048
     Dates: start: 20140705
  2. NORCO (PARACETAMOL, HYDROCODONE BITARTRATE) [Concomitant]
  3. POMALYST [Suspect]
     Active Substance: POMALIDOMIDE
     Indication: PLASMA CELL MYELOMA
     Route: 048
     Dates: start: 20140705
  4. VITAMIN D (VITAMIN D NOS) [Concomitant]
  5. DOCUSATE (DOCUSATE) [Concomitant]
     Active Substance: DOCUSATE
  6. MORPHINE SULFATE (MORPHINE SULFATE) [Concomitant]
  7. MULTIVITAMINS (ERGOCALCIFEROL, ASCORBIC ACID, FOLIC ACID, THIAMINE HYDROCHLORIDE, RETINOL, RIBOFLAVIN, NICOTINAMIDE, PANTHENOL) [Concomitant]
  8. POMALYST [Suspect]
     Active Substance: POMALIDOMIDE
     Indication: THYMUS ABSCESS
     Route: 048
     Dates: start: 20140705
  9. FOLIC ACID (FOLIC ACID) [Concomitant]
     Active Substance: FOLIC ACID
  10. PANTOPRAZOLE (PANTOPRAZOLE) [Concomitant]
     Active Substance: PANTOPRAZOLE SODIUM

REACTIONS (1)
  - Plasma cell myeloma [None]

NARRATIVE: CASE EVENT DATE: 2014
